FAERS Safety Report 6117266-2 (Version None)
Quarter: 2009Q1

REPORT INFORMATION
  Report Type: 
  Country: None (occurrence: None)
  Receive Date: 20090314
  Receipt Date: 20090112
  Transmission Date: 20090719
  Serious: No
  Sender: FDA-Public Use
  Company Number: US-ABBOTT-09P-163-0497139-00

PATIENT
  Sex: Female
  Weight: 95.34 kg

DRUGS (10)
  1. HUMIRA [Suspect]
     Indication: PSORIASIS
     Dates: start: 20080401
  2. HUMIRA [Suspect]
     Indication: PSORIATIC ARTHROPATHY
  3. APIDRA  INSULIN [Concomitant]
     Indication: TYPE 2 DIABETES MELLITUS
     Dosage: SLIDING SCALE DOSING
  4. LEVEMIR [Concomitant]
     Indication: TYPE 2 DIABETES MELLITUS
  5. CALTRATE +VIT.D [Concomitant]
     Indication: VITAMIN D DEFICIENCY
     Dates: start: 20081201
  6. PLAVIX [Concomitant]
     Indication: BLOOD CHOLESTEROL INCREASED
  7. LASIX [Concomitant]
     Indication: HYPERTENSION
  8. DOVONEX [Concomitant]
     Indication: PSORIASIS
     Dosage: APPLY1 TO 2 TIMES A DAY
     Route: 061
  9. NIFEDIPINE [Concomitant]
     Indication: HYPERTENSION
  10. TEKTURNA [Concomitant]
     Indication: HYPERTENSION

REACTIONS (10)
  - ARTHRALGIA [None]
  - BACK PAIN [None]
  - HAEMATOCHEZIA [None]
  - INJECTION SITE PAIN [None]
  - JOINT SWELLING [None]
  - PAIN IN EXTREMITY [None]
  - PSORIASIS [None]
  - ULCER [None]
  - URTICARIA [None]
  - VITAMIN D DEFICIENCY [None]
